FAERS Safety Report 8151216-2 (Version None)
Quarter: 2012Q1

REPORT INFORMATION
  Report Type: 
  Country: None (occurrence: None)
  Receive Date: 20120220
  Receipt Date: 20120217
  Transmission Date: 20120608
  Serious: Yes (Death, Other)
  Sender: FDA-Public Use
  Company Number: PHHY2012GB013604

PATIENT
  Age: 89 Year

DRUGS (7)
  1. TEICOPLANIN [Suspect]
     Indication: PNEUMONIA
     Dosage: 400 MG, BID
     Route: 042
     Dates: start: 20110411, end: 20110413
  2. AMLODIPINE [Concomitant]
     Dosage: 5 MG, QD
     Route: 048
  3. SIMVASTATIN [Concomitant]
     Dosage: 20 MG, QD
     Route: 048
  4. IPRATROPIUM BROMIDE [Concomitant]
     Dates: start: 20110412
  5. ALBUTEROL SULFATE AUTOHALER [Concomitant]
     Dates: start: 20110412
  6. LEVOFLOXACIN [Suspect]
     Indication: PNEUMONIA
     Dosage: 500 MG, BID
     Route: 042
     Dates: start: 20110411, end: 20110413
  7. FLUTICASONE PROPIONATE/SALMETEROL [Concomitant]
     Dosage: 2 DF, BID

REACTIONS (4)
  - ACUTE HEPATIC FAILURE [None]
  - RENAL IMPAIRMENT [None]
  - CARDIAC ARREST [None]
  - RENAL FAILURE ACUTE [None]
